FAERS Safety Report 8422731 (Version 2)
Quarter: 2013Q1

REPORT INFORMATION
  Report Type: Spontaneous
  Country: US (occurrence: US)
  Receive Date: 20120223
  Receipt Date: 20130111
  Transmission Date: 20140127
  Serious: Yes (Hospitalization)
  Sender: FDA-Public Use
  Company Number: US-BAYER-2012-016728

PATIENT
  Age: 26 Year
  Sex: Female
  Weight: 63.7 kg

DRUGS (12)
  1. BEYAZ [Suspect]
     Indication: MENSTRUATION IRREGULAR
     Dosage: UNK
     Route: 048
     Dates: start: 201101, end: 20110306
  2. YAZ [Suspect]
     Indication: MENSTRUATION IRREGULAR
     Dosage: 1 DF, QD
     Route: 048
     Dates: start: 201008
  3. GIANVI [Suspect]
     Indication: MENSTRUATION IRREGULAR
     Dosage: UNK
     Dates: start: 20101020
  4. YASMIN [Suspect]
  5. OCELLA [Suspect]
  6. ALLEGRA [Concomitant]
  7. AMITIZA [Concomitant]
  8. TRUSOPT [Concomitant]
  9. FEXOFENADINE [Concomitant]
  10. ASPIRIN [Concomitant]
  11. PERCOCET [Concomitant]
  12. CRYSELLE-28 [Concomitant]
     Indication: MENSTRUATION IRREGULAR
     Dosage: UNK
     Dates: start: 201011

REACTIONS (5)
  - Deep vein thrombosis [Recovering/Resolving]
  - Injury [Recovering/Resolving]
  - Pain [Recovering/Resolving]
  - Emotional distress [None]
  - Pain [None]
